FAERS Safety Report 20752970 (Version 3)
Quarter: 2023Q2

REPORT INFORMATION
  Report Type: Spontaneous
  Country: US (occurrence: None)
  Receive Date: 20220426
  Receipt Date: 20230420
  Transmission Date: 20230721
  Serious: No
  Sender: FDA-Public Use
  Company Number: US-ROCHE-2971761

PATIENT
  Sex: Male

DRUGS (1)
  1. ESBRIET [Suspect]
     Active Substance: PIRFENIDONE
     Indication: Idiopathic pulmonary fibrosis
     Dosage: THREE TIMES IN ONE DAY FOR 7 DAYS
     Route: 048
     Dates: start: 20211029

REACTIONS (2)
  - Headache [Unknown]
  - Abdominal pain upper [Unknown]
